FAERS Safety Report 23723262 (Version 1)
Quarter: 2024Q2

REPORT INFORMATION
  Report Type: Spontaneous
  Country: CA (occurrence: CA)
  Receive Date: 20240409
  Receipt Date: 20240409
  Transmission Date: 20240715
  Serious: Yes (Other)
  Sender: FDA-Public Use
  Company Number: CA-FreseniusKabi-FK202405657

PATIENT
  Age: 67 Year
  Sex: Male

DRUGS (5)
  1. OXALIPLATIN [Suspect]
     Active Substance: OXALIPLATIN
     Indication: Pancreatic carcinoma
     Dosage: DOSAGE FORM: SOLUTION INTRAVENOUS
     Route: 042
  2. BENADRYL [Concomitant]
     Active Substance: DIPHENHYDRAMINE HYDROCHLORIDE
     Indication: Product used for unknown indication
     Dosage: FOA: NOT SPECIFIED
  3. DEXAMETHASONE [Concomitant]
     Active Substance: DEXAMETHASONE
     Indication: Product used for unknown indication
     Dosage: FOA: NOT SPECIFIED?ROA: UNKNOWN
  4. EPINEPHRINE [Concomitant]
     Active Substance: EPINEPHRINE
     Indication: Product used for unknown indication
     Dosage: FOA: NOT SPECIFIED
  5. FAMOTIDINE [Concomitant]
     Active Substance: FAMOTIDINE
     Indication: Product used for unknown indication
     Dosage: FOA: NOT SPECIFIED

REACTIONS (11)
  - Abdominal pain upper [Recovered/Resolved]
  - Anaphylactic reaction [Recovered/Resolved]
  - Chest discomfort [Recovered/Resolved]
  - Chest pain [Recovered/Resolved]
  - Dyspnoea [Recovered/Resolved]
  - Erythema [Recovered/Resolved]
  - Flushing [Recovered/Resolved]
  - Oxygen therapy [Recovered/Resolved]
  - Swelling face [Recovered/Resolved]
  - Swollen tongue [Recovered/Resolved]
  - Urticaria [Recovered/Resolved]
